FAERS Safety Report 6204333-8 (Version None)
Quarter: 2009Q2

REPORT INFORMATION
  Report Type: 
  Country: None (occurrence: None)
  Receive Date: 20090522
  Receipt Date: 20090506
  Transmission Date: 20091009
  Serious: Yes (Life-Threatening, Hospitalization)
  Sender: FDA-Public Use
  Company Number: 8045892

PATIENT
  Age: 65 Year
  Sex: Female

DRUGS (3)
  1. XYZAL [Suspect]
     Indication: PRURITUS
     Dosage: 5 MG 1/D PO
     Route: 048
     Dates: start: 20090316
  2. XYZAL [Suspect]
     Indication: RASH
     Dosage: 5 MG 1/D PO
     Route: 048
     Dates: start: 20090316
  3. PREDNISONE [Concomitant]

REACTIONS (1)
  - PNEUMONIA [None]
